FAERS Safety Report 13605998 (Version 3)
Quarter: 2017Q2

REPORT INFORMATION
  Report Type: Spontaneous
  Country: US (occurrence: US)
  Receive Date: 20170602
  Receipt Date: 20170623
  Transmission Date: 20170830
  Serious: No
  Sender: FDA-Public Use
  Company Number: US-PFIZER INC-2017240318

PATIENT
  Age: 66 Year
  Sex: Female

DRUGS (1)
  1. NICOTROL [Suspect]
     Active Substance: NICOTINE
     Dosage: UNK
     Route: 055
     Dates: start: 20170528

REACTIONS (3)
  - Cough [Unknown]
  - Poor quality drug administered [Unknown]
  - Product quality issue [Unknown]
